FAERS Safety Report 5320444-3 (Version None)
Quarter: 2007Q2

REPORT INFORMATION
  Report Type: 
  Country: None (occurrence: None)
  Receive Date: 20070509
  Receipt Date: 20070427
  Transmission Date: 20071010
  Serious: Yes (Disabling)
  Sender: FDA-Public Use
  Company Number: CA-SANOFI-SYNTHELABO-A01200704606

PATIENT
  Age: 42 Year
  Sex: Female

DRUGS (4)
  1. PETHIDINE [Suspect]
     Indication: HEADACHE
     Route: 030
  2. SUMATRIPTAN SUCCINATE [Suspect]
     Dosage: UNK
     Route: 030
  3. DIHYDROERGOTAMINE MESYLATE [Suspect]
     Dosage: UNK
     Route: 030
  4. DIPHENHYDRINATE [Suspect]
     Dosage: UNK
     Route: 030

REACTIONS (1)
  - MYOPATHY [None]
